FAERS Safety Report 5788261-8 (Version None)
Quarter: 2008Q2

REPORT INFORMATION
  Report Type: 
  Country: None (occurrence: None)
  Receive Date: 20080625
  Receipt Date: 20080613
  Transmission Date: 20081010
  Serious: Yes (Other)
  Sender: FDA-Public Use
  Company Number: JP-PFIZER INC-2008050441

PATIENT
  Age: 65 Year
  Sex: Female

DRUGS (1)
  1. CABASER [Suspect]
     Indication: PARKINSON'S DISEASE
     Route: 048

REACTIONS (2)
  - CARDIAC HYPERTROPHY [None]
  - CARDIAC VALVE DISEASE [None]
